FAERS Safety Report 8867790 (Version 1)
Quarter: 2012Q4

REPORT INFORMATION
  Report Type: 
  Country: US (occurrence: US)
  Receive Date: 20121026
  Receipt Date: 20121026
  Transmission Date: 20130627
  Serious: No
  Sender: FDA-Public Use
  Company Number: US-AMGEN-USASP2012041389

PATIENT
  Sex: Female
  Weight: 93.42 kg

DRUGS (18)
  1. ENBREL [Suspect]
     Indication: PRODUCT USED FOR UNKNOWN INDICATION
     Dosage: 50 mg, qwk
     Route: 058
  2. HUMALOG [Concomitant]
     Dosage: 100/ml, UNK
  3. SINGULAIR [Concomitant]
     Dosage: 10 mg, UNK
  4. COZAAR [Concomitant]
     Dosage: 25 mg, UNK
  5. PLAQUENIL                          /00072602/ [Concomitant]
     Dosage: 200 mg, UNK
  6. TYLENOL WITH CODEIN #3 [Concomitant]
     Dosage: UNK
  7. NORVASC [Concomitant]
     Dosage: 5 mg, UNK
  8. LIPITOR [Concomitant]
     Dosage: 10 mg, UNK
  9. ALLEGRA [Concomitant]
     Dosage: 30 mg, UNK
  10. LANTUS [Concomitant]
     Dosage: 100/ML
  11. KETOCONAZOLE [Concomitant]
     Dosage: 2 %, UNK
  12. METFORMIN [Concomitant]
     Dosage: 500 mg, UNK
  13. GABAPENTIN [Concomitant]
     Dosage: 100 mg, UNK
  14. CLONIDINE [Concomitant]
     Dosage: 0.1 mg, UNK
  15. PREVACID [Concomitant]
     Dosage: 15 mg, UNK
  16. ZETIA [Concomitant]
     Dosage: 10 mg, UNK
  17. PROAIR HFA [Concomitant]
     Dosage: UNK
  18. BYDUREON [Concomitant]
     Dosage: UNK

REACTIONS (2)
  - Oedema peripheral [Unknown]
  - Pain in extremity [Unknown]
